FAERS Safety Report 7595685-5 (Version None)
Quarter: 2011Q3

REPORT INFORMATION
  Report Type: 
  Country: None (occurrence: None)
  Receive Date: 20110707
  Receipt Date: 20110629
  Transmission Date: 20111222
  Serious: Yes (Hospitalization, Other)
  Sender: FDA-Public Use
  Company Number: US-ELI_LILLY_AND_COMPANY-US201002003760

PATIENT
  Sex: Male
  Weight: 111.11 kg

DRUGS (3)
  1. BYETTA [Suspect]
     Dosage: UNK, UNKNOWN
     Route: 065
     Dates: start: 20050501, end: 20090331
  2. CRESTOR [Concomitant]
     Indication: BLOOD CHOLESTEROL INCREASED
  3. LOVAZA [Concomitant]
     Dosage: 4 G, QD

REACTIONS (5)
  - PANCREATITIS CHRONIC [None]
  - PANCREATIC INSUFFICIENCY [None]
  - PANCREATITIS [None]
  - CHOLELITHIASIS [None]
  - PANCREATITIS ACUTE [None]
